FAERS Safety Report 10023621 (Version 1)
Quarter: 2014Q1

REPORT INFORMATION
  Report Type: Spontaneous
  Country: US (occurrence: US)
  Receive Date: 20140320
  Receipt Date: 20140320
  Transmission Date: 20141002
  Serious: No
  Sender: FDA-Public Use
  Company Number: US-JNJFOC-20140212578

PATIENT
  Age: 64 Year
  Sex: Male
  Weight: 94.35 kg

DRUGS (2)
  1. INVEGA [Suspect]
     Indication: SCHIZOAFFECTIVE DISORDER
     Dosage: 3 OR 6 MG
     Route: 048
     Dates: start: 201310
  2. INVEGA SUSTENNA [Suspect]
     Indication: SCHIZOAFFECTIVE DISORDER
     Dosage: 3 OR 6 MG
     Route: 030
     Dates: start: 201310

REACTIONS (1)
  - Therapeutic response decreased [Not Recovered/Not Resolved]
